FAERS Safety Report 16735708 (Version 1)
Quarter: 2019Q3

REPORT INFORMATION
  Report Type: Spontaneous
  Country: US (occurrence: US)
  Receive Date: 20190708
  Receipt Date: 20190708
  Transmission Date: 20191005
  Serious: No
  Sender: FDA-Public Use
  Company Number: None

PATIENT
  Age: 55 Year
  Sex: Male
  Weight: 84.82 kg

DRUGS (1)
  1. COSENTYX [Suspect]
     Active Substance: SECUKINUMAB
     Indication: ANKYLOSING SPONDYLITIS
     Dosage: INJECT 300MG  (2 SYRINGES) SUBCUTANEOUSLY ONCE A WEEK FOR 5  WEEKS AS DIRECTED
     Route: 058
     Dates: start: 201808

REACTIONS (1)
  - Abdominal pain upper [None]
